FAERS Safety Report 4594777-2 (Version None)
Quarter: 2005Q1

REPORT INFORMATION
  Report Type: 
  Country: None (occurrence: None)
  Receive Date: 20050223
  Receipt Date: 20050217
  Transmission Date: 20050727
  Serious: Yes (Other)
  Sender: FDA-Public Use
  Company Number: GBWYE434817FEB05

PATIENT
  Age: 37 Year
  Sex: Male

DRUGS (2)
  1. EFFEXOR [Suspect]
  2. OLANZAPINE [Concomitant]

REACTIONS (5)
  - ANXIETY [None]
  - CEREBROVASCULAR ACCIDENT [None]
  - CONVULSION [None]
  - LOSS OF LIBIDO [None]
  - RASH [None]
